FAERS Safety Report 6636198-4 (Version None)
Quarter: 2010Q1

REPORT INFORMATION
  Report Type: 
  Country: None (occurrence: None)
  Receive Date: 20100311
  Receipt Date: 20100224
  Transmission Date: 20100710
  Serious: Yes (Hospitalization)
  Sender: FDA-Public Use
  Company Number: AMAG201000133

PATIENT
  Age: 38 Year
  Sex: Female
  Weight: 90.2 kg

DRUGS (4)
  1. FERAHEME [Suspect]
     Indication: IRON DEFICIENCY ANAEMIA
     Dosage: 510 MG, SINGLE, INTRAVENOUS, 12 ML (630 MG)SINGLE, INTRAVENOUS
     Route: 042
     Dates: start: 20100115, end: 20100115
  2. FERAHEME [Suspect]
     Indication: IRON DEFICIENCY ANAEMIA
     Dosage: 510 MG, SINGLE, INTRAVENOUS, 12 ML (630 MG)SINGLE, INTRAVENOUS
     Route: 042
     Dates: start: 20100127, end: 20100127
  3. SUMATRIPTAN SUCCINATE [Concomitant]
  4. MULTIVITAMIN [Concomitant]

REACTIONS (12)
  - ABDOMINAL PAIN [None]
  - BLOOD PRESSURE IMMEASURABLE [None]
  - DIZZINESS [None]
  - DRUG HYPERSENSITIVITY [None]
  - EYE ROLLING [None]
  - HYPERHIDROSIS [None]
  - HYPOTENSION [None]
  - INFUSION RELATED REACTION [None]
  - NAUSEA [None]
  - PULSE ABNORMAL [None]
  - UNRESPONSIVE TO STIMULI [None]
  - VOMITING [None]
